FAERS Safety Report 16475848 (Version 2)
Quarter: 2019Q3

REPORT INFORMATION
  Report Type: Report from Study
  Country: US (occurrence: US)
  Receive Date: 20190625
  Receipt Date: 20190703
  Transmission Date: 20191004
  Serious: Yes (Death)
  Sender: FDA-Public Use
  Company Number: US-EXELIXIS-CABO-19022008

PATIENT
  Sex: Male

DRUGS (1)
  1. CABOMETYX [Suspect]
     Active Substance: CABOZANTINIB S-MALATE
     Indication: PARAGANGLION NEOPLASM MALIGNANT
     Dosage: 40 MG, UNK

REACTIONS (3)
  - Sepsis [Fatal]
  - Pulmonary embolism [Fatal]
  - Off label use [Unknown]
